FAERS Safety Report 16715758 (Version 1)
Quarter: 2019Q3

REPORT INFORMATION
  Report Type: Spontaneous
  Country: US (occurrence: US)
  Receive Date: 20190819
  Receipt Date: 20190819
  Transmission Date: 20191005
  Serious: Yes (Hospitalization, Other)
  Sender: FDA-Public Use
  Company Number: US-INCYTE CORPORATION-2019IN006900

PATIENT

DRUGS (3)
  1. ELIQUIS [Suspect]
     Active Substance: APIXABAN
     Indication: ATRIAL FIBRILLATION
     Dosage: UNK
     Route: 065
     Dates: end: 2018
  2. JAKAFI [Suspect]
     Active Substance: RUXOLITINIB
     Indication: POLYCYTHAEMIA VERA
     Dosage: 10 MILLIGRAM, BID
     Route: 048
     Dates: start: 20160302
  3. JAKAFI [Suspect]
     Active Substance: RUXOLITINIB
     Indication: MYELOFIBROSIS
     Dosage: UNK
     Route: 065
     Dates: start: 20141114

REACTIONS (28)
  - Atrial fibrillation [Recovered/Resolved]
  - Hypoxia [Recovered/Resolved]
  - Procedural pain [Recovered/Resolved]
  - Blood magnesium decreased [Unknown]
  - Post procedural complication [Recovered/Resolved]
  - Haematoma [Recovered/Resolved]
  - Benign prostatic hyperplasia [Unknown]
  - Periorbital oedema [Recovered/Resolved]
  - Bandaemia [Recovering/Resolving]
  - Compartment syndrome [Unknown]
  - Vomiting [Recovered/Resolved]
  - Bronchospasm [Recovered/Resolved]
  - Ecchymosis [Recovered/Resolved]
  - Nausea [Recovered/Resolved]
  - Haemorrhage [Unknown]
  - Post procedural haemorrhage [Recovered/Resolved]
  - Tachycardia [Recovered/Resolved]
  - Basal cell carcinoma [Recovered/Resolved]
  - Coagulopathy [Unknown]
  - Gout [Unknown]
  - Hypofibrinogenaemia [Unknown]
  - Splenomegaly [Unknown]
  - Heart rate irregular [Unknown]
  - Hypercholesterolaemia [Unknown]
  - Type 2 diabetes mellitus [Unknown]
  - Leukocytosis [Recovering/Resolving]
  - Essential hypertension [Unknown]
  - Breath sounds abnormal [Unknown]

NARRATIVE: CASE EVENT DATE: 20190517
